APPROVED DRUG PRODUCT: EPIFOAM
Active Ingredient: HYDROCORTISONE ACETATE; PRAMOXINE HYDROCHLORIDE
Strength: 1%;1%
Dosage Form/Route: AEROSOL, METERED;TOPICAL
Application: A086457 | Product #001 | TE Code: BX
Applicant: MYLAN SPECIALTY LP
Approved: Approved Prior to Jan 1, 1982 | RLD: No | RS: No | Type: RX